FAERS Safety Report 14447028 (Version 2)
Quarter: 2021Q3

REPORT INFORMATION
  Report Type: Spontaneous
  Country: US (occurrence: US)
  Receive Date: 20180126
  Receipt Date: 20210705
  Transmission Date: 20211014
  Serious: Yes (Disabling, Other)
  Sender: FDA-Public Use
  Company Number: US-TEVA-2018-US-850966

PATIENT
  Age: 48 Year
  Sex: Female
  Weight: 127 kg

DRUGS (20)
  1. CLOTRIMAZOLEBETAM [Concomitant]
     Route: 065
     Dates: start: 2010
  2. MINOCYCLINE [Concomitant]
     Active Substance: MINOCYCLINE HYDROCHLORIDE
     Indication: ACNE
     Dosage: 100 MILLIGRAM DAILY;
     Route: 048
     Dates: start: 2010
  3. VENLAFAXINE [Concomitant]
     Active Substance: VENLAFAXINE HYDROCHLORIDE
     Dosage: EXTENDED RELEASE
     Route: 048
     Dates: start: 2010
  4. METHYLPREDNISOLONE. [Concomitant]
     Active Substance: METHYLPREDNISOLONE
     Route: 065
     Dates: start: 2010
  5. DOCETAXEL SANOFI AVENTIS [Suspect]
     Active Substance: DOCETAXEL
     Indication: TRIPLE POSITIVE BREAST CANCER
     Dosage: EVERY 3 WEEKS FOR 6 CYCLES
     Route: 042
     Dates: start: 20140129, end: 20140513
  6. BENZONATATE. [Concomitant]
     Active Substance: BENZONATATE
     Route: 065
     Dates: start: 2010
  7. DOCETAXEL SAGENT [Suspect]
     Active Substance: DOCETAXEL
     Indication: TRIPLE POSITIVE BREAST CANCER
     Dosage: EVERY 3 WEEKS FOR 6 CYCLES
     Route: 042
     Dates: start: 20140129, end: 20140513
  8. HERCEPTIN [Suspect]
     Active Substance: TRASTUZUMAB
     Dosage: EVERY 3 WEEKS 5 CYCLES
     Route: 042
     Dates: start: 20140219, end: 20140513
  9. DEXAMETHASONE. [Concomitant]
     Active Substance: DEXAMETHASONE
     Indication: TRIPLE POSITIVE BREAST CANCER
     Route: 042
     Dates: start: 20140401, end: 20140513
  10. HYDROCHLOROTHIAZIDE. [Concomitant]
     Active Substance: HYDROCHLOROTHIAZIDE
     Dosage: 25 MILLIGRAM DAILY;
     Route: 048
     Dates: start: 2010
  11. MULTIVITAMIN WITH MINERALS [Concomitant]
     Active Substance: MINERALS\VITAMINS
     Route: 048
  12. MULTIVITAMIN [Concomitant]
     Active Substance: VITAMINS
     Dosage: 1 DOSAGE FORMS DAILY;
     Route: 048
  13. CARBOPLATIN. [Suspect]
     Active Substance: CARBOPLATIN
     Indication: TRIPLE POSITIVE BREAST CANCER
     Dosage: EVERY 3 WEEKS FOR 6 CYCLES
     Route: 042
     Dates: start: 20140129, end: 20140513
  14. DOCETAXEL HOSPIRA [Suspect]
     Active Substance: DOCETAXEL
     Indication: TRIPLE POSITIVE BREAST CANCER
     Dosage: EVERY 3 WEEKS FOR 6 CYCLES
     Route: 042
     Dates: start: 20140129, end: 20140513
  15. DOCETAXEL SAGENT [Suspect]
     Active Substance: DOCETAXEL
     Dosage: EVERY 3 WEEKS FOR 6 YCLES
     Route: 042
     Dates: start: 20140129, end: 20140513
  16. HERCEPTIN [Suspect]
     Active Substance: TRASTUZUMAB
     Dosage: EVERY 3 WEEKS 6 CYCLES
     Route: 042
     Dates: start: 20140717, end: 20141030
  17. HERCEPTIN [Suspect]
     Active Substance: TRASTUZUMAB
     Indication: TRIPLE POSITIVE BREAST CANCER
     Route: 042
     Dates: start: 20140129, end: 20140129
  18. PERJETA [Suspect]
     Active Substance: PERTUZUMAB
     Indication: TRIPLE POSITIVE BREAST CANCER
     Dosage: EVERY 3 WEEKS
     Route: 042
     Dates: start: 20140219, end: 20140513
  19. HERCEPTIN [Suspect]
     Active Substance: TRASTUZUMAB
     Route: 042
     Dates: start: 20140627, end: 20140627
  20. LEVOFLOXACIN. [Concomitant]
     Active Substance: LEVOFLOXACIN
     Route: 065
     Dates: start: 2010

REACTIONS (17)
  - Toxicity to various agents [Unknown]
  - Madarosis [Not Recovered/Not Resolved]
  - Neutropenia [Recovering/Resolving]
  - Hair texture abnormal [Not Recovered/Not Resolved]
  - Upper respiratory tract infection [Recovered/Resolved]
  - Alopecia areata [Not Recovered/Not Resolved]
  - Diarrhoea [Recovered/Resolved]
  - Hypogeusia [Recovering/Resolving]
  - Arthralgia [Recovered/Resolved]
  - Hair colour changes [Not Recovered/Not Resolved]
  - Amenorrhoea [Not Recovered/Not Resolved]
  - Decreased appetite [Recovered/Resolved]
  - Peripheral coldness [Not Recovered/Not Resolved]
  - Anaemia [Recovering/Resolving]
  - Fatigue [Unknown]
  - Rash [Unknown]
  - Acne [Recovering/Resolving]

NARRATIVE: CASE EVENT DATE: 201402
